FAERS Safety Report 4713023-X (Version None)
Quarter: 2005Q3

REPORT INFORMATION
  Report Type: 
  Country: None (occurrence: None)
  Receive Date: 20050711
  Receipt Date: 20050628
  Transmission Date: 20060218
  Serious: Yes (Other)
  Sender: FDA-Public Use
  Company Number: 2005093373

PATIENT
  Age: 70 Year
  Sex: Female

DRUGS (1)
  1. XALATAN [Suspect]
     Indication: GLAUCOMA
     Dosage: 2 DROP (SINGLE INTERVAL: EVERYDAY), TOPICAL
     Route: 061
     Dates: start: 20010920

REACTIONS (1)
  - ANOSMIA [None]
